FAERS Safety Report 12067424 (Version 1)
Quarter: 2016Q1

REPORT INFORMATION
  Report Type: Spontaneous
  Country: US (occurrence: US)
  Receive Date: 20160211
  Receipt Date: 20160211
  Transmission Date: 20160526
  Serious: No
  Sender: FDA-Public Use
  Company Number: US-PERRIGO-15US008683

PATIENT
  Age: 29 Year
  Sex: Male
  Weight: 79.37 kg

DRUGS (1)
  1. IBUPROFEN. [Suspect]
     Active Substance: IBUPROFEN
     Indication: OFF LABEL USE
     Dosage: UNKNOWN, SINGLE
     Route: 048
     Dates: start: 201508, end: 201508

REACTIONS (5)
  - Dry throat [Recovered/Resolved]
  - Burning sensation [Recovered/Resolved]
  - Cough [Recovered/Resolved]
  - Off label use [Recovered/Resolved]
  - Lacrimation increased [Recovered/Resolved]

NARRATIVE: CASE EVENT DATE: 201508
